FAERS Safety Report 5409404-1 (Version None)
Quarter: 2007Q3

REPORT INFORMATION
  Report Type: 
  Country: None (occurrence: None)
  Receive Date: 20070808
  Receipt Date: 20070808
  Transmission Date: 20080115
  Serious: Yes (Death)
  Sender: FDA-Public Use
  Company Number: None

PATIENT
  Sex: Male
  Weight: 72.4 kg

DRUGS (13)
  1. IRINOTECAN HCL [Suspect]
     Indication: GLIOBLASTOMA MULTIFORME
     Dosage: 325MG/M2 DAY 1 IV
     Route: 042
     Dates: start: 20070702
  2. TEMODAR [Suspect]
     Indication: GLIOBLASTOMA MULTIFORME
     Dosage: 200MG/M2 DAYS 1-5 PO
     Route: 048
     Dates: start: 20070702
  3. DILANTIN KAPSEAL [Concomitant]
  4. DEXAMETHASONE 0.5MG TAB [Concomitant]
  5. ATIVAN [Concomitant]
  6. DECADRON [Concomitant]
  7. PHENERGAN HCL [Concomitant]
  8. MOTRIN [Concomitant]
  9. OXYCODONE HCL [Concomitant]
  10. LIPITOR [Concomitant]
  11. TYLENOL (CAPLET) [Concomitant]
  12. COLACE [Concomitant]
  13. OSCAL [Concomitant]

REACTIONS (7)
  - BRAIN HERNIATION [None]
  - CONVULSION [None]
  - HAEMORRHAGE [None]
  - HEADACHE [None]
  - MENTAL STATUS CHANGES [None]
  - NERVOUS SYSTEM DISORDER [None]
  - POSTURING [None]
